FAERS Safety Report 20724795 (Version 1)
Quarter: 2022Q2

REPORT INFORMATION
  Report Type: Spontaneous
  Country: US (occurrence: None)
  Receive Date: 20220418
  Receipt Date: 20220418
  Transmission Date: 20220721
  Serious: Yes (Other)
  Sender: FDA-Public Use
  Company Number: None

PATIENT
  Sex: Female

DRUGS (1)
  1. PANTOPRAZOLE [Suspect]
     Active Substance: PANTOPRAZOLE
     Dosage: FREQUENCY : DAILY;?
     Route: 048
     Dates: start: 20210624, end: 20220401

REACTIONS (6)
  - Dehydration [None]
  - Thirst [None]
  - Pollakiuria [None]
  - Dry mouth [None]
  - Dizziness [None]
  - Malaise [None]
